FAERS Safety Report 6420945-0 (Version None)
Quarter: 2009Q4

REPORT INFORMATION
  Report Type: 
  Country: None (occurrence: None)
  Receive Date: 20091028
  Receipt Date: 20091021
  Transmission Date: 20100525
  Serious: Yes (Hospitalization)
  Sender: FDA-Public Use
  Company Number: 1000009650

PATIENT
  Age: 69 Year
  Sex: Female

DRUGS (4)
  1. BYSTOLIC [Suspect]
     Indication: HYPERTENSION
     Dosage: 10 MG, (10 MG, 1 IN 1 D), ORAL
     Route: 048
     Dates: start: 20090826, end: 20090921
  2. LISINOPRIL AND HYDROCHLOROTHIAZIDE [Concomitant]
  3. EXFORGE [Concomitant]
  4. CRESTOR (5 MILLIGRAM) [Concomitant]

REACTIONS (2)
  - NODAL RHYTHM [None]
  - PRESYNCOPE [None]
